FAERS Safety Report 9523441 (Version 1)
Quarter: 2013Q1

REPORT INFORMATION
  Report Type: Spontaneous
  Country: US (occurrence: None)
  Receive Date: 20130305
  Receipt Date: 20130305
  Transmission Date: 20140127
  Serious: Yes (Other)
  Sender: FDA-Public Use
  Company Number: 163-21880-12012685

PATIENT
  Age: 64 Year
  Sex: Male

DRUGS (23)
  1. REVLIMID (LENALIDOMIDE) (25 MILLIGRAM, CAPSULES) [Suspect]
     Indication: PLASMA CELL MYELOMA
     Dosage: 25 MG, QD X 21 DAYS Q 28, PO
     Route: 048
     Dates: start: 20120101
  2. JANTOVEN (WARFARIN SODIUM) (TABLETS) [Concomitant]
  3. AMLODIPINE BESYLATE (AMLODIPINE BESILATE) (TABLETS) [Concomitant]
  4. HYDRALAZINE HCL (HYDRALAZINE HYDROCHLORIDE) (TABLETS)? [Concomitant]
  5. LOVASTATIN (VOVASTATIN) (TABLETS) [Concomitant]
  6. AVAPRO (IRBESARTAN) (TABLETS)? [Concomitant]
  7. FUROSEMIDE (FUROSEMIDE) (TABLETS) [Concomitant]
  8. K-LOR (POTASSIUM CHLORIDE) (TABLETS) [Concomitant]
  9. SOMA (CARISOPRODOL) (TABLETS) [Concomitant]
  10. HUMALOG (INSULIN LISPRO) (SOLUTION) [Concomitant]
  11. LANTUS (INSULIN GLARGINE) (SOLUTION) [Concomitant]
  12. ALPRAZOLAM (ALPROZOLAM) (UNKNOWN) [Concomitant]
  13. EFFEXOR XR (VENLAFAXINE HYDROCHLORIDE) (CAPSULES) [Concomitant]
  14. SEROQUEL (QUETIAPINE FUMARATE) (TABLETS) [Concomitant]
  15. HYDROCODONE-ACETAMINOPHEN (VICODIN) (TABLETS) [Concomitant]
  16. VITAMIN C (ASCORBIC ACID) (TABLETS) [Concomitant]
  17. COMPLEX (BECOSYM FORTE) (UNKNOWN) [Concomitant]
  18. CHEW-12 (MULTIVITAMINS) (CHEWABLE TABLET) [Concomitant]
  19. OXYCONTIN (OXYCODONE HYDROCHLORIDE) (TABLETS) [Concomitant]
  20. METOPROLOL TARTRATE (METOPROLOL TARTRATE) (TABLETS) (METOPROLOL TARTRATE) [Concomitant]
  21. RITALIN(METHYLPHENIDATE HYDROCHLORIDE) (TABLETS) [Concomitant]
  22. TRAZADONE HCL (TRAZODONE HYDROCHLORIDE) (TABLETS) [Concomitant]
  23. DEXAMETHASONE (DEXAMETHASONE) (4 MILLIGRAM, TABLETS) [Concomitant]

REACTIONS (4)
  - Plasma cell myeloma [None]
  - Malaise [None]
  - Anaemia [None]
  - Thrombocytopenia [None]
